FAERS Safety Report 8731515 (Version 2)
Quarter: 2012Q4

REPORT INFORMATION
  Report Type: 
  Country: US (occurrence: US)
  Receive Date: 20120820
  Receipt Date: 20120925
  Transmission Date: 20130627
  Serious: No
  Sender: FDA-Public Use
  Company Number: US-B.I. PHARMACEUTICALS,INC./RIDGEFIELD-2012-BP-19272BP

PATIENT
  Age: 55 None
  Sex: Male

DRUGS (13)
  1. FLOMAX CAPSULES [Suspect]
     Indication: NEPHROLITHIASIS
     Dosage: 0.4 mg
     Route: 048
     Dates: start: 20120414
  2. FLOMAX CAPSULES [Suspect]
     Indication: URINARY RETENTION
     Dosage: 0.4 mg
     Route: 048
     Dates: start: 20120612, end: 20120612
  3. FLOMAX CAPSULES [Suspect]
     Indication: BENIGN PROSTATIC HYPERPLASIA
     Dosage: 0.4 mg
     Route: 048
     Dates: start: 20120813, end: 20120813
  4. COZZAR [Concomitant]
     Indication: HYPERTENSION
     Route: 048
  5. PERCOCET [Concomitant]
     Indication: PAIN
     Route: 048
     Dates: start: 201204, end: 201204
  6. MOTRIN [Concomitant]
     Indication: PAIN
     Route: 048
     Dates: start: 201204, end: 201204
  7. HYZAAR [Concomitant]
     Indication: HYPERTENSION
     Route: 048
  8. RED YEAST RICE [Concomitant]
     Route: 048
  9. ASPIRIN [Concomitant]
     Dosage: 81 mg
     Route: 048
  10. MULTIVITAMIN [Concomitant]
     Route: 048
  11. COQ10 [Concomitant]
     Route: 048
  12. LYSINE [Concomitant]
     Route: 048
  13. FISH OIL [Concomitant]
     Route: 048

REACTIONS (17)
  - Dizziness [Recovered/Resolved]
  - Lethargy [Not Recovered/Not Resolved]
  - Dizziness [Recovered/Resolved]
  - Cold sweat [Recovered/Resolved]
  - Urinary retention [Not Recovered/Not Resolved]
  - Urine output increased [Recovered/Resolved]
  - Nasal congestion [Recovered/Resolved]
  - Asthenia [Not Recovered/Not Resolved]
  - Headache [Recovered/Resolved]
  - Myalgia [Recovered/Resolved]
  - Pain [Recovered/Resolved]
  - Feeling hot [Recovered/Resolved]
  - Feeling cold [Not Recovered/Not Resolved]
  - Back pain [Recovered/Resolved]
  - Hyperhidrosis [Recovered/Resolved]
  - Dizziness [Recovered/Resolved]
  - Poor quality sleep [Recovered/Resolved]
